FAERS Safety Report 8050692-3 (Version None)
Quarter: 2012Q1

REPORT INFORMATION
  Report Type: 
  Country: None (occurrence: None)
  Receive Date: 20120117
  Receipt Date: 20120117
  Transmission Date: 20120608
  Serious: No
  Sender: FDA-Public Use
  Company Number: None

PATIENT
  Age: 53 Year
  Sex: Male
  Weight: 78.017 kg

DRUGS (1)
  1. DEXILANT [Suspect]
     Indication: GASTROOESOPHAGEAL REFLUX DISEASE
     Dosage: 1
     Route: 048
     Dates: start: 20111110, end: 20111210

REACTIONS (3)
  - CONSTIPATION [None]
  - HAEMORRHOIDS [None]
  - CONDITION AGGRAVATED [None]
